FAERS Safety Report 21004739 (Version 1)
Quarter: 2022Q2

REPORT INFORMATION
  Report Type: Spontaneous
  Country: US (occurrence: None)
  Receive Date: 20220624
  Receipt Date: 20220624
  Transmission Date: 20220721
  Serious: Yes (Other)
  Sender: FDA-Public Use
  Company Number: None

PATIENT
  Age: 61 Year
  Sex: Male

DRUGS (1)
  1. GLATIRAMER ACETATE [Suspect]
     Active Substance: GLATIRAMER ACETATE
     Indication: Multiple sclerosis

REACTIONS (7)
  - Chest discomfort [None]
  - Dyspnoea [None]
  - Erythema [None]
  - Feeling cold [None]
  - Headache [None]
  - Dysstasia [None]
  - Body temperature increased [None]

NARRATIVE: CASE EVENT DATE: 20220622
